FAERS Safety Report 13563459 (Version 1)
Quarter: 2017Q2

REPORT INFORMATION
  Report Type: Report from Study
  Country: CH (occurrence: CH)
  Receive Date: 20170519
  Receipt Date: 20170519
  Transmission Date: 20170830
  Serious: Yes (Death)
  Sender: FDA-Public Use
  Company Number: CH-TEVA-768613ROM

PATIENT
  Age: 37 Year
  Sex: Male
  Weight: 62 kg

DRUGS (1)
  1. MIRTAZAPINE. [Suspect]
     Active Substance: MIRTAZAPINE
     Indication: DEPRESSION
     Route: 065

REACTIONS (2)
  - Diabetes mellitus [Fatal]
  - Diabetic ketoacidosis [Fatal]
